FAERS Safety Report 16334711 (Version 5)
Quarter: 2019Q4

REPORT INFORMATION
  Report Type: Spontaneous
  Country: US (occurrence: US)
  Receive Date: 20190520
  Receipt Date: 20191003
  Transmission Date: 20200122
  Serious: Yes (Other)
  Sender: FDA-Public Use
  Company Number: US-SUNOVION-2019SUN002049

PATIENT
  Sex: Male
  Weight: 70.3 kg

DRUGS (11)
  1. APTIOM [Suspect]
     Active Substance: ESLICARBAZEPINE ACETATE
     Dosage: 400 MG, QD
     Route: 048
  2. KEPPRA [Concomitant]
     Active Substance: LEVETIRACETAM
     Indication: SEIZURE
     Dosage: 75 MG, BID
  3. APTIOM [Suspect]
     Active Substance: ESLICARBAZEPINE ACETATE
     Dosage: 200 MG (400MG HALF TAB EVERY OTHER DAY) QOD
     Route: 048
  4. DILANTIN [Concomitant]
     Active Substance: PHENYTOIN
     Dosage: 130 MG, BID
  5. DILANTIN [Concomitant]
     Active Substance: PHENYTOIN
     Dosage: 100 MG, BID
  6. APTIOM [Suspect]
     Active Substance: ESLICARBAZEPINE ACETATE
     Dosage: 200 MG (400MG HALF TAB EVERY AM AND PM) BID
     Route: 048
  7. APTIOM [Suspect]
     Active Substance: ESLICARBAZEPINE ACETATE
     Indication: SEIZURE
     Dosage: 300MG IN AM/ 200MG IN PM
     Route: 048
  8. APTIOM [Suspect]
     Active Substance: ESLICARBAZEPINE ACETATE
     Dosage: 200 MG (400MG HALF TAB EVERY DAY) QD
     Route: 048
  9. KEPPRA [Concomitant]
     Active Substance: LEVETIRACETAM
     Dosage: 1500 MG, QD
  10. APTIOM [Suspect]
     Active Substance: ESLICARBAZEPINE ACETATE
     Indication: EPILEPSY
     Dosage: 300 MG, BID (IN AM AND PM)
     Route: 048
  11. APTIOM [Suspect]
     Active Substance: ESLICARBAZEPINE ACETATE
     Dosage: 400 MG, QD
     Route: 048

REACTIONS (10)
  - Fall [Unknown]
  - Asthenia [Not Recovered/Not Resolved]
  - Prescribed underdose [Unknown]
  - Seizure [Recovered/Resolved]
  - Disturbance in attention [Unknown]
  - Off label use [Unknown]
  - Balance disorder [Not Recovered/Not Resolved]
  - Somnolence [Not Recovered/Not Resolved]
  - Dizziness [Not Recovered/Not Resolved]
  - Exercise tolerance decreased [Not Recovered/Not Resolved]
